FAERS Safety Report 9810754 (Version 1)
Quarter: 2014Q1

REPORT INFORMATION
  Report Type: Spontaneous
  Country: US (occurrence: US)
  Receive Date: 20140110
  Receipt Date: 20140110
  Transmission Date: 20141002
  Serious: Yes (Hospitalization)
  Sender: FDA-Public Use
  Company Number: US-SANOFI-AVENTIS-2012SA089985

PATIENT
  Age: 79 Year
  Sex: Male
  Weight: 71.8 kg

DRUGS (8)
  1. CLOPIDOGREL BISULFATE [Suspect]
     Indication: ANTICOAGULANT THERAPY
     Dosage: TDD: 75 UNITS UNSPECIFIED
     Route: 065
     Dates: start: 201002, end: 201009
  2. ASPIRIN [Suspect]
     Indication: ANTICOAGULANT THERAPY
     Dosage: TDD: 325 UNITS UNSPECIFIED
     Route: 065
     Dates: start: 201002
  3. WARFARIN [Suspect]
     Indication: ANTICOAGULANT THERAPY
     Dosage: TDD: UNITS UNSPECIFIED
     Route: 065
     Dates: start: 201006
  4. PRAVASTATIN [Concomitant]
     Indication: PRODUCT USED FOR UNKNOWN INDICATION
     Dosage: TOTAL DAILY DOSE: 80 (UNITS NOT REPORTED)
     Dates: start: 201002
  5. BLINDED THERAPY [Concomitant]
     Dates: start: 20100408, end: 20101121
  6. BLINDED THERAPY [Concomitant]
     Dates: start: 20101128
  7. COREG [Concomitant]
     Dosage: TOTAL DAILY DOSE: 12.5
     Dates: start: 201002
  8. HYTRIN [Concomitant]
     Dosage: TOTAL DAILY DOSE: 5 (UNITS NOT REPORTED)
     Dates: start: 2005

REACTIONS (1)
  - Gastrointestinal haemorrhage [Recovered/Resolved]
